FAERS Safety Report 5558888-7 (Version None)
Quarter: 2007Q4

REPORT INFORMATION
  Report Type: 
  Country: None (occurrence: None)
  Receive Date: 20071214
  Receipt Date: 20070905
  Transmission Date: 20080405
  Serious: No
  Sender: FDA-Public Use
  Company Number: US-ABBOTT-07P-163-0416615-00

PATIENT
  Sex: Female
  Weight: 74.91 kg

DRUGS (3)
  1. HUMIRA [Suspect]
     Indication: RHEUMATOID ARTHRITIS
     Route: 058
     Dates: start: 20070831
  2. PILLS FOR DIABETES [Concomitant]
     Indication: DIABETES MELLITUS
     Route: 048
  3. PILLS FOR RHEUMATOID ARTHRITIS [Concomitant]
     Indication: RHEUMATOID ARTHRITIS
     Route: 048

REACTIONS (5)
  - BUCCAL MUCOSAL ROUGHENING [None]
  - GINGIVAL DISCOLOURATION [None]
  - ORAL DISCOMFORT [None]
  - ORAL MUCOSAL DISCOLOURATION [None]
  - ORAL PAIN [None]
